FAERS Safety Report 16477958 (Version 2)
Quarter: 2019Q3

REPORT INFORMATION
  Report Type: Report from Study
  Country: IN (occurrence: IN)
  Receive Date: 20190626
  Receipt Date: 20190916
  Transmission Date: 20191004
  Serious: Yes (Other)
  Sender: FDA-Public Use
  Company Number: PHHY2019IN119866

PATIENT
  Age: 69 Year
  Sex: Male

DRUGS (8)
  1. SCAPHO [Suspect]
     Active Substance: SECUKINUMAB
     Dosage: 300 MG, QW
     Route: 058
  2. SCAPHO [Suspect]
     Active Substance: SECUKINUMAB
     Dosage: 300 MG, QMO
     Route: 058
  3. SCAPHO [Suspect]
     Active Substance: SECUKINUMAB
     Dosage: 300 MG, QW
     Route: 058
     Dates: start: 20190418
  4. INSULIN [Concomitant]
     Active Substance: INSULIN NOS
     Indication: DIABETES MELLITUS
     Route: 065
  5. SCAPHO [Suspect]
     Active Substance: SECUKINUMAB
     Indication: PSORIASIS
     Dosage: 300 MG, QW
     Route: 058
     Dates: start: 20190319
  6. SCAPHO [Suspect]
     Active Substance: SECUKINUMAB
     Dosage: 300 MG, QW
     Route: 058
  7. SCAPHO [Suspect]
     Active Substance: SECUKINUMAB
     Dosage: 300 MG, QMO
     Route: 058
     Dates: start: 20190520
  8. SCAPHO [Suspect]
     Active Substance: SECUKINUMAB
     Dosage: 300 MG, QW
     Route: 058

REACTIONS (7)
  - Hypoacusis [Not Recovered/Not Resolved]
  - Ear infection fungal [Unknown]
  - Skin lesion [Not Recovered/Not Resolved]
  - Dysphagia [Unknown]
  - Upper respiratory fungal infection [Recovered/Resolved]
  - Pharyngitis [Recovering/Resolving]
  - Macule [Recovering/Resolving]

NARRATIVE: CASE EVENT DATE: 201904
